FAERS Safety Report 16277933 (Version 1)
Quarter: 2019Q2

REPORT INFORMATION
  Report Type: Spontaneous
  Country: GB (occurrence: GB)
  Receive Date: 20190506
  Receipt Date: 20190506
  Transmission Date: 20190711
  Serious: Yes (Life-Threatening, Hospitalization)
  Sender: FDA-Public Use
  Company Number: GB-TEVA-2019-GB-1045386

PATIENT
  Age: 12 Year
  Sex: Male
  Weight: 48.5 kg

DRUGS (2)
  1. SODIUM VALPROATE [Suspect]
     Active Substance: VALPROATE SODIUM
     Indication: GENERALISED TONIC-CLONIC SEIZURE
     Dosage: INCREASING DOSE INITIALLY 200MG TWICE DAILY BUILDING UP TO 500MG TWICE DAILY OVER 4 WEEKS
     Route: 048
     Dates: start: 20180924, end: 20181119
  2. LAMOTRIGINE. [Concomitant]
     Active Substance: LAMOTRIGINE
     Indication: SEIZURE

REACTIONS (6)
  - Pica [Recovered/Resolved with Sequelae]
  - Venous thrombosis [Unknown]
  - Gastrointestinal perforation [Recovered/Resolved with Sequelae]
  - Pyrexia [Unknown]
  - Abdominal pain [Unknown]
  - Increased appetite [Unknown]

NARRATIVE: CASE EVENT DATE: 201810
